FAERS Safety Report 21913783 (Version 1)
Quarter: 2023Q1

REPORT INFORMATION
  Report Type: Spontaneous
  Country: US (occurrence: US)
  Receive Date: 20230125
  Receipt Date: 20230125
  Transmission Date: 20230417
  Serious: No
  Sender: FDA-Public Use
  Company Number: US-ALLERGAN-2219979US

PATIENT
  Sex: Female

DRUGS (3)
  1. BOTOX COSMETIC [Suspect]
     Active Substance: ONABOTULINUMTOXINA
     Indication: Skin wrinkling
     Dosage: UNK, SINGLE
     Dates: start: 202205, end: 202205
  2. BOTOX COSMETIC [Suspect]
     Active Substance: ONABOTULINUMTOXINA
     Indication: Skin wrinkling
     Dosage: UNK, SINGLE
     Dates: start: 202205, end: 202205
  3. LARISSIA [Suspect]
     Active Substance: ETHINYL ESTRADIOL\LEVONORGESTREL

REACTIONS (18)
  - Feeling abnormal [Unknown]
  - Choking sensation [Unknown]
  - Fatigue [Unknown]
  - Neuralgia [Unknown]
  - Erythema [Unknown]
  - Joint swelling [Unknown]
  - Peripheral swelling [Unknown]
  - Swelling face [Unknown]
  - Agitation [Unknown]
  - Head discomfort [Unknown]
  - Anger [Unknown]
  - Off label use [Unknown]
  - Poor quality product administered [Unknown]
  - Speech disorder [Unknown]
  - Gait disturbance [Unknown]
  - Headache [Unknown]
  - Vision blurred [Unknown]
  - Suspected counterfeit product [Unknown]

NARRATIVE: CASE EVENT DATE: 20220501
